FAERS Safety Report 5466758-8 (Version None)
Quarter: 2007Q3

REPORT INFORMATION
  Report Type: 
  Country: None (occurrence: None)
  Receive Date: 20070925
  Receipt Date: 20070912
  Transmission Date: 20080115
  Serious: Yes (Death, Hospitalization)
  Sender: FDA-Public Use
  Company Number: AU-ELI_LILLY_AND_COMPANY-AU200602004441

PATIENT
  Age: 49 Year
  Sex: Female

DRUGS (6)
  1. ANTIDEPRESSANTS [Concomitant]
     Dosage: UNK, UNKNOWN
     Route: 065
  2. ANXIOLYTICS [Concomitant]
     Dosage: UNK, UNKNOWN
     Route: 065
  3. INSECTICIDES AND REPELLENTS [Concomitant]
     Dosage: UNK, UNKNOWN
     Route: 065
  4. OLANZAPINE [Suspect]
     Indication: PERSONALITY DISORDER
     Dosage: 20 MG
     Dates: start: 20060201
  5. OLANZAPINE [Suspect]
     Dosage: 10 MG, AS NEEDED
     Dates: start: 20060201
  6. DOTHIEPIN HYDROCHLORIDE [Concomitant]
     Dates: start: 20060201

REACTIONS (2)
  - COMPLETED SUICIDE [None]
  - SUICIDE ATTEMPT [None]
